FAERS Safety Report 8068907-4 (Version None)
Quarter: 2012Q1

REPORT INFORMATION
  Report Type: 
  Country: None (occurrence: None)
  Receive Date: 20120125
  Receipt Date: 20120118
  Transmission Date: 20120608
  Serious: No
  Sender: FDA-Public Use
  Company Number: US-BIOGENIDEC-2012BI002158

PATIENT
  Age: 60 Year
  Sex: Male

DRUGS (2)
  1. AVONEX [Suspect]
     Indication: MULTIPLE SCLEROSIS
     Route: 030
     Dates: start: 19970101, end: 20071212
  2. AVONEX [Suspect]
     Route: 030
     Dates: start: 20100203

REACTIONS (3)
  - INJECTION SITE PAIN [None]
  - BORDERLINE GLAUCOMA [None]
  - MUSCULAR WEAKNESS [None]
